FAERS Safety Report 17611947 (Version 2)
Quarter: 2022Q2

REPORT INFORMATION
  Report Type: Report from Study
  Country: US (occurrence: US)
  Receive Date: 20200401
  Receipt Date: 20220513
  Transmission Date: 20220721
  Serious: Yes (Hospitalization, Other)
  Sender: FDA-Public Use
  Company Number: US-TEVA-2020-US-1213823

PATIENT
  Age: 50 Year
  Sex: Male
  Weight: 77.180 kg

DRUGS (5)
  1. FENTORA [Suspect]
     Active Substance: FENTANYL CITRATE
     Indication: Bone pain
     Route: 065
  2. FENTORA [Suspect]
     Active Substance: FENTANYL CITRATE
     Dosage: 400MCG 4 TIMES PER DAY AS NEEDED
     Route: 065
  3. WELLBUTRIN [Concomitant]
     Active Substance: BUPROPION HYDROCHLORIDE
     Dosage: 300 MG
     Route: 065
  4. OXYCODONE [Concomitant]
     Active Substance: OXYCODONE
     Route: 065
  5. FENTANYL [Concomitant]
     Active Substance: FENTANYL
     Dosage: PATCHES 25MG
     Route: 065

REACTIONS (13)
  - Hallucination [Unknown]
  - Hallucination, visual [Unknown]
  - Dizziness [Unknown]
  - Photopsia [Unknown]
  - Loss of consciousness [Unknown]
  - Loss of consciousness [Unknown]
  - Stress fracture [Unknown]
  - Bone pain [Unknown]
  - Presyncope [Unknown]
  - Therapeutic product effect incomplete [Unknown]
  - Anxiety [Unknown]
  - Therapy interrupted [Unknown]
  - Inability to afford medication [Unknown]

NARRATIVE: CASE EVENT DATE: 20200101
